FAERS Safety Report 8590454 (Version 4)
Quarter: 2014Q1

REPORT INFORMATION
  Report Type: Spontaneous
  Country: US (occurrence: US)
  Receive Date: 20120601
  Receipt Date: 20140115
  Transmission Date: 20141002
  Serious: Yes (Hospitalization, Disabling, Congenital Anomaly)
  Sender: FDA-Public Use
  Company Number: US-ASTRAZENECA-2012SE34418

PATIENT
  Age: 61 Year
  Sex: Male
  Weight: 99.8 kg

DRUGS (14)
  1. VIAGRA [Concomitant]
     Dates: start: 2004, end: 2006
  2. FAMOTIDINE [Concomitant]
     Dates: start: 20110616
  3. CELECOXIB [Concomitant]
     Dates: start: 20110616
  4. METOCLOPRAM [Concomitant]
     Dates: start: 20110616
  5. DOCUSATE [Concomitant]
     Dates: start: 20110616
  6. ACETAMIN [Concomitant]
     Dates: start: 20110616
  7. NEXIUM [Suspect]
     Indication: GASTROOESOPHAGEAL REFLUX DISEASE
     Dosage: A FEW TIMES
     Route: 048
     Dates: start: 2004, end: 2005
  8. NEXIUM [Suspect]
     Indication: GASTROOESOPHAGEAL REFLUX DISEASE
     Route: 048
     Dates: start: 20051209
  9. PRILOSEC [Suspect]
     Dosage: A FEW TIMES
     Route: 048
     Dates: start: 2004, end: 2005
  10. VITAMIN A [Concomitant]
  11. VITAMIN C [Concomitant]
  12. VITAMIN D [Concomitant]
  13. CALCIUM [Concomitant]
  14. MINERAL SUPPLEMENTS [Concomitant]

REACTIONS (7)
  - Multiple fractures [Unknown]
  - Dyspepsia [Unknown]
  - Arthralgia [Unknown]
  - Musculoskeletal discomfort [Unknown]
  - Colon cancer [Unknown]
  - Osteoporosis [Unknown]
  - Bone disorder [Unknown]
